FAERS Safety Report 14765420 (Version 1)
Quarter: 2018Q2

REPORT INFORMATION
  Report Type: Spontaneous
  Country: DE (occurrence: DE)
  Receive Date: 20180416
  Receipt Date: 20180416
  Transmission Date: 20180711
  Serious: Yes (Death, Hospitalization)
  Sender: FDA-Public Use
  Company Number: PHHY2014DE185044

PATIENT
  Sex: Male
  Weight: 69 kg

DRUGS (41)
  1. OXALIPLATIN. [Suspect]
     Active Substance: OXALIPLATIN
     Dosage: 150 MG, TIW
     Route: 042
     Dates: start: 20140211, end: 20140211
  2. XELODA [Suspect]
     Active Substance: CAPECITABINE
     Dosage: 3560 MG, TIW
     Route: 048
     Dates: start: 20140211, end: 20140224
  3. AVASTIN [Suspect]
     Active Substance: BEVACIZUMAB
     Indication: COLORECTAL CANCER METASTATIC
     Dosage: 335 MG, EVERY 21 DAYS
     Route: 042
     Dates: start: 20140218
  4. ATROPIN [Concomitant]
     Active Substance: ATROPINE
     Indication: PROPHYLAXIS
     Dosage: UNK
     Route: 042
  5. OTRIVEN [Concomitant]
     Active Substance: XYLOMETAZOLINE HYDROCHLORIDE
     Indication: RHINITIS
     Dosage: 3 DF, QD
     Route: 065
     Dates: start: 20140902, end: 20140908
  6. OTRIVEN [Concomitant]
     Active Substance: XYLOMETAZOLINE HYDROCHLORIDE
     Indication: SINUSITIS
  7. TORASEMID [Concomitant]
     Active Substance: TORSEMIDE
     Indication: ASCITES
     Dosage: 5 MG, QD
     Route: 048
     Dates: start: 20141110
  8. GRANISETRON [Concomitant]
     Active Substance: GRANISETRON
     Indication: PRODUCT USED FOR UNKNOWN INDICATION
     Dosage: 1 MG, QD
     Route: 048
     Dates: start: 20140121
  9. XELODA [Suspect]
     Active Substance: CAPECITABINE
     Dosage: 3560 MG, TIW
     Route: 048
     Dates: start: 20140415, end: 20140428
  10. AVASTIN [Suspect]
     Active Substance: BEVACIZUMAB
     Dosage: 320 MG, UNK
     Route: 042
  11. PASPERTIN (METOCLOPRAMIDE HYDROCHLORIDE) [Concomitant]
     Indication: PRODUCT USED FOR UNKNOWN INDICATION
     Dosage: 60 GTT, UNK
     Route: 048
     Dates: start: 20140121
  12. IRINOTECAN [Concomitant]
     Active Substance: IRINOTECAN
     Dosage: 320 MG, UNK
     Route: 042
     Dates: start: 20140805, end: 20140805
  13. MACROGOL [Concomitant]
     Active Substance: POLYETHYLENE GLYCOLS
     Indication: CONSTIPATION PROPHYLAXIS
     Dosage: 1 DF, QD
     Route: 048
     Dates: start: 20150831
  14. ATACAND [Concomitant]
     Active Substance: CANDESARTAN CILEXETIL
     Indication: HYPERTENSION
     Dosage: 8 MG, QD
     Route: 048
     Dates: start: 20061221
  15. OXALIPLATIN. [Suspect]
     Active Substance: OXALIPLATIN
     Indication: COLORECTAL CANCER METASTATIC
     Dosage: 150 MG, TIW
     Route: 042
     Dates: start: 20140121, end: 20140121
  16. OXALIPLATIN. [Suspect]
     Active Substance: OXALIPLATIN
     Dosage: 160 MG, TIW
     Route: 042
     Dates: start: 20140513, end: 20140513
  17. OXALIPLATIN. [Suspect]
     Active Substance: OXALIPLATIN
     Dosage: 160 MG, TIW
     Route: 042
     Dates: start: 20140603, end: 20140603
  18. XELODA [Suspect]
     Active Substance: CAPECITABINE
     Dosage: 3560 MG, TIW
     Route: 048
     Dates: start: 20140325, end: 20140407
  19. IRINOTECAN [Concomitant]
     Active Substance: IRINOTECAN
     Indication: COLORECTAL CANCER
     Dosage: 330 MG, BIW
     Route: 042
     Dates: start: 20140722, end: 20140722
  20. 5-FLUOROURACIL [Concomitant]
     Active Substance: FLUOROURACIL
     Indication: COLORECTAL CANCER METASTATIC
     Dosage: 700 MG, BIW
     Route: 065
     Dates: start: 20141118, end: 20141202
  21. XELODA [Suspect]
     Active Substance: CAPECITABINE
     Dosage: 2150 MG, BIW (625 MG/M2)
     Route: 048
     Dates: start: 20140722
  22. SPIRONOLACTON [Concomitant]
     Active Substance: SPIRONOLACTONE
     Indication: ASCITES
     Dosage: 100 MG, QD
     Route: 048
     Dates: start: 20150831
  23. TORASEMID [Concomitant]
     Active Substance: TORSEMIDE
     Dosage: 10 MG, QD
     Route: 048
  24. XELODA [Suspect]
     Active Substance: CAPECITABINE
     Dosage: 2150 MG, UNK
     Route: 048
  25. LOPERAMID [Concomitant]
     Active Substance: LOPERAMIDE
     Indication: PROPHYLAXIS
     Dosage: 2 MG, PRN
     Route: 048
  26. GLANDOMED [Concomitant]
     Indication: PROPHYLAXIS
     Dosage: 1 DF, QD (MOUTH RINSING SOLUTION)
     Route: 048
     Dates: start: 20140304, end: 20140304
  27. FORTECORTIN [Concomitant]
     Active Substance: DEXAMETHASONE
     Dosage: 1-0-1
     Route: 048
     Dates: start: 20140121
  28. TILIDIN [Concomitant]
     Active Substance: NALOXONE HYDROCHLORIDE\TILIDINE HYDROCHLORIDE
     Indication: PAIN PROPHYLAXIS
     Dosage: 3 OT, QD
     Route: 065
     Dates: start: 20150831
  29. DEXAMETHASONE. [Concomitant]
     Active Substance: DEXAMETHASONE
     Indication: PROPHYLAXIS
     Dosage: 12 MG, QD (ON DAY WHEN CHEMOTHERAPY WAS APPLICATED)
     Route: 048
     Dates: start: 20140324
  30. ACC ACUTE [Concomitant]
     Indication: SINUSITIS
  31. ASPIRIN. [Concomitant]
     Active Substance: ASPIRIN
     Indication: HYPERTENSION
     Dosage: 100 MG, QD
     Route: 048
     Dates: start: 20061221
  32. OXALIPLATIN. [Suspect]
     Active Substance: OXALIPLATIN
     Dosage: 160 MG, TIW
     Route: 042
     Dates: start: 20140325, end: 20140325
  33. OXALIPLATIN. [Suspect]
     Active Substance: OXALIPLATIN
     Dosage: 160 MG, TIW
     Route: 042
     Dates: start: 20140415, end: 20140415
  34. AVASTIN [Suspect]
     Active Substance: BEVACIZUMAB
     Dosage: 500 MG, EVERY 14 DAYS
     Route: 042
     Dates: start: 20140325
  35. ACC ACUTE [Concomitant]
     Indication: RHINITIS
     Dosage: 1 OT, QD
     Route: 048
     Dates: start: 20140902, end: 20140908
  36. MAGNESIUM-OPTOPAN [Concomitant]
     Active Substance: MAGNESIUM OXIDE
     Indication: PROPHYLAXIS
     Dosage: 1 DF, QD
     Route: 048
     Dates: start: 20140304, end: 20140304
  37. OXALIPLATIN. [Suspect]
     Active Substance: OXALIPLATIN
     Dosage: 230 MG, TIW
     Route: 042
     Dates: start: 20140304, end: 20140304
  38. XELODA [Suspect]
     Active Substance: CAPECITABINE
     Indication: COLORECTAL CANCER METASTATIC
     Dosage: 3560 MG, TIW
     Route: 048
     Dates: start: 20140121, end: 20140203
  39. XELODA [Suspect]
     Active Substance: CAPECITABINE
     Dosage: 3560 MG, TIW
     Route: 048
     Dates: start: 20140304, end: 20140317
  40. IRINOTECAN [Concomitant]
     Active Substance: IRINOTECAN
     Dosage: 320 MG, BIW
     Route: 042
     Dates: start: 20140826, end: 20140826
  41. FOLINIC ACID [Concomitant]
     Active Substance: LEUCOVORIN
     Indication: COLORECTAL CANCER METASTATIC
     Dosage: 700 MG, BIW
     Route: 043
     Dates: start: 20140218, end: 20141202

REACTIONS (4)
  - Hiccups [Recovered/Resolved]
  - Gastroenteritis norovirus [Recovered/Resolved]
  - Alopecia [Not Recovered/Not Resolved]
  - General physical health deterioration [Fatal]

NARRATIVE: CASE EVENT DATE: 20140327
